FAERS Safety Report 26128436 (Version 2)
Quarter: 2025Q4

REPORT INFORMATION
  Report Type: Report from Study
  Country: EU (occurrence: EU)
  Receive Date: 20251207
  Receipt Date: 20251211
  Transmission Date: 20260118
  Serious: Yes (Other)
  Sender: ABBVIE
  Company Number: EU-ABBVIE-6568884

PATIENT
  Age: 84 Year
  Sex: Male

DRUGS (7)
  1. FOSCARBIDOPA\FOSLEVODOPA [Suspect]
     Active Substance: FOSCARBIDOPA\FOSLEVODOPA
     Indication: Parkinson^s disease
     Dosage: CR 0.44ML/H; CR HIGH 0.47ML/H; CR LOW 0.24ML/H; ED 0.20ML
     Route: 058
     Dates: start: 20251119, end: 202511
  2. FOSCARBIDOPA\FOSLEVODOPA [Suspect]
     Active Substance: FOSCARBIDOPA\FOSLEVODOPA
     Dosage: CR 0.46ML/H; CR HIGH 0.48ML/H; CR LOW 0.23ML/H; ED 0.20ML
     Route: 058
     Dates: start: 202511, end: 202511
  3. FOSCARBIDOPA\FOSLEVODOPA [Suspect]
     Active Substance: FOSCARBIDOPA\FOSLEVODOPA
     Dosage: CR 0.49ML/H; CR HIGH 0.51ML/H; CR LOW 0.24ML/H; ED 0.20ML?LAST ADMIN DATE: NOV 2025
     Route: 058
     Dates: start: 202511, end: 202511
  4. FOSCARBIDOPA\FOSLEVODOPA [Suspect]
     Active Substance: FOSCARBIDOPA\FOSLEVODOPA
     Dosage: CR 0.49ML/H; CR HIGH 0.25ML/H; CR LOW 0.25ML/H; ED 0.20ML
     Route: 058
     Dates: start: 202511, end: 2025
  5. FOSCARBIDOPA\FOSLEVODOPA [Suspect]
     Active Substance: FOSCARBIDOPA\FOSLEVODOPA
     Dosage: CR 0.50ML/H; CR HIGH 0.52ML/H; CR LOW 0.26ML/H; ED 0.20ML
     Route: 058
     Dates: start: 2025, end: 2025
  6. FOSCARBIDOPA\FOSLEVODOPA [Suspect]
     Active Substance: FOSCARBIDOPA\FOSLEVODOPA
     Dosage: CR 0.48ML/H; CR HIGH 0.51ML/H; CR LOW 0.25ML/H; ED 0.20ML
     Route: 058
     Dates: start: 2025
  7. ONGENTYS [Concomitant]
     Active Substance: OPICAPONE
     Indication: Product used for unknown indication
     Dates: start: 2025

REACTIONS (7)
  - Macular degeneration [Unknown]
  - Hypokinesia [Recovering/Resolving]
  - Speech disorder [Not Recovered/Not Resolved]
  - Bradykinesia [Recovered/Resolved]
  - Feeling abnormal [Unknown]
  - On and off phenomenon [Recovered/Resolved]
  - Sitting disability [Not Recovered/Not Resolved]

NARRATIVE: CASE EVENT DATE: 20250101
